FAERS Safety Report 8249665-7 (Version None)
Quarter: 2012Q2

REPORT INFORMATION
  Report Type: 
  Country: None (occurrence: None)
  Receive Date: 20120402
  Receipt Date: 20120327
  Transmission Date: 20120825
  Serious: No
  Sender: FDA-Public Use
  Company Number: US-PFIZER INC-2012072805

PATIENT
  Sex: Female
  Weight: 85.261 kg

DRUGS (6)
  1. NEURONTIN [Suspect]
     Dosage: 700MG IN MORNING AND 300MG AT NIGHT MG, UNK
     Route: 048
  2. NEURONTIN [Suspect]
     Dosage: UNK
     Route: 048
  3. ZOCOR [Concomitant]
     Indication: BLOOD CHOLESTEROL INCREASED
     Dosage: UNK
  4. NEURONTIN [Suspect]
     Indication: NEUROPATHY PERIPHERAL
     Dosage: 300 MG, 4X/DAY
     Route: 048
  5. LIPIDIL [Concomitant]
     Dosage: UNK
  6. COREG [Concomitant]
     Indication: HYPERTENSION
     Dosage: 10 MG

REACTIONS (7)
  - HEART RATE INCREASED [None]
  - VISION BLURRED [None]
  - HYPERSOMNIA [None]
  - NAUSEA [None]
  - FEELING ABNORMAL [None]
  - DRY MOUTH [None]
  - SOMNOLENCE [None]
